FAERS Safety Report 5551772-4 (Version None)
Quarter: 2007Q4

REPORT INFORMATION
  Report Type: 
  Country: None (occurrence: None)
  Receive Date: 20071129
  Receipt Date: 20070726
  Transmission Date: 20080405
  Serious: Yes (Hospitalization)
  Sender: FDA-Public Use
  Company Number: US200611002819

PATIENT
  Age: 49 Year
  Sex: Male
  Weight: 79.8 kg

DRUGS (15)
  1. ZYPREXA [Suspect]
     Indication: BIPOLAR DISORDER
     Dosage: 5 MG, EACH MORNING, ORAL; 15 MG, EACH EVENING, 10 MG, 2/D; 5 MG, EACH MORNING; 10 MG
     Route: 048
     Dates: end: 20010410
  2. ZYPREXA [Suspect]
     Indication: BIPOLAR DISORDER
     Dosage: 5 MG, EACH MORNING, ORAL; 15 MG, EACH EVENING, 10 MG, 2/D; 5 MG, EACH MORNING; 10 MG
     Route: 048
     Dates: start: 20010202, end: 20020516
  3. ZYPREXA [Suspect]
     Indication: BIPOLAR DISORDER
     Dosage: 5 MG, EACH MORNING, ORAL; 15 MG, EACH EVENING, 10 MG, 2/D; 5 MG, EACH MORNING; 10 MG
     Route: 048
     Dates: start: 20010410
  4. ZYPREXA [Suspect]
     Indication: BIPOLAR DISORDER
     Dosage: 5 MG, EACH MORNING, ORAL; 15 MG, EACH EVENING, 10 MG, 2/D; 5 MG, EACH MORNING; 10 MG
     Route: 048
     Dates: start: 20011017
  5. ZYPREXA [Suspect]
     Indication: BIPOLAR DISORDER
     Dosage: 5 MG, EACH MORNING, ORAL; 15 MG, EACH EVENING, 10 MG, 2/D; 5 MG, EACH MORNING; 10 MG
     Route: 048
     Dates: start: 20011017
  6. LISINOPRIL [Concomitant]
  7. ATENOLOL [Concomitant]
  8. ASPIRIN [Concomitant]
  9. FOLATE                    (FOLIC ACID) [Concomitant]
  10. VITAMIN E [Concomitant]
  11. ATORVASTATIN CALCIUM [Concomitant]
  12. TRAZODONE HCL [Concomitant]
  13. CELEBREX [Concomitant]
  14. DEPAKOTE [Concomitant]
  15. NIASPAN [Concomitant]

REACTIONS (12)
  - AKATHISIA [None]
  - ANKLE FRACTURE [None]
  - BLOOD GLUCOSE INCREASED [None]
  - DIABETES MELLITUS [None]
  - DRY SKIN [None]
  - FATIGUE [None]
  - HYPERGLYCAEMIA [None]
  - HYPOGLYCAEMIA [None]
  - METABOLIC DISORDER [None]
  - SOMNOLENCE [None]
  - WEIGHT DECREASED [None]
  - WEIGHT INCREASED [None]
